FAERS Safety Report 23145931 (Version 1)
Quarter: 2023Q4

REPORT INFORMATION
  Report Type: Spontaneous
  Country: CO (occurrence: CO)
  Receive Date: 20231104
  Receipt Date: 20231104
  Transmission Date: 20240110
  Serious: Yes (Hospitalization, Other)
  Sender: FDA-Public Use
  Company Number: CO-EPICPHARMA-CO-2023EPCLIT01605

PATIENT
  Age: 55 Year
  Sex: Female

DRUGS (6)
  1. ZOLEDRONIC ACID [Suspect]
     Active Substance: ZOLEDRONIC ACID
     Indication: Osteoporosis
     Route: 065
  2. DENOSUMAB [Suspect]
     Active Substance: DENOSUMAB
     Indication: Osteoporosis
     Dosage: EVERY 6 MONTHS
     Route: 065
  3. CALCIUM CITRATE [Concomitant]
     Active Substance: CALCIUM CITRATE
     Indication: Product used for unknown indication
     Route: 065
  4. VITAMIN D NOS [Concomitant]
     Active Substance: VITAMIN D NOS
     Indication: Product used for unknown indication
     Route: 065
  5. ACETAMINOPHEN [Concomitant]
     Active Substance: ACETAMINOPHEN
     Indication: Pain
     Route: 065
  6. COBALAMIN [Concomitant]
     Active Substance: COBALAMIN
     Indication: Product used for unknown indication
     Route: 065

REACTIONS (3)
  - Calciphylaxis [Recovered/Resolved]
  - Erythema nodosum [Recovered/Resolved]
  - Product use in unapproved indication [Unknown]
